FAERS Safety Report 16308224 (Version 2)
Quarter: 2020Q4

REPORT INFORMATION
  Report Type: Spontaneous
  Country: US (occurrence: US)
  Receive Date: 20190514
  Receipt Date: 20201215
  Transmission Date: 20210113
  Serious: Yes (Death, Hospitalization, Other)
  Sender: FDA-Public Use
  Company Number: US-ASTRAZENECA-2019SE66342

PATIENT
  Age: 53 Year
  Sex: Male
  Weight: 158.8 kg

DRUGS (27)
  1. TRAZODONE [Concomitant]
     Active Substance: TRAZODONE HYDROCHLORIDE
  2. FAMOTIDINE. [Concomitant]
     Active Substance: FAMOTIDINE
  3. POTASSIUM [Concomitant]
     Active Substance: POTASSIUM
  4. ASPIRIN. [Concomitant]
     Active Substance: ASPIRIN
  5. PRILOSEC OTC [Suspect]
     Active Substance: OMEPRAZOLE MAGNESIUM
     Indication: GASTROOESOPHAGEAL REFLUX DISEASE
     Dosage: 20.0MG UNKNOWN
     Route: 048
     Dates: start: 2006, end: 2011
  6. OMEPRAZOLE. [Suspect]
     Active Substance: OMEPRAZOLE
     Indication: GASTROOESOPHAGEAL REFLUX DISEASE
     Dosage: 20.0MG UNKNOWN
     Route: 065
     Dates: start: 201607, end: 201905
  7. DULOXETINE. [Concomitant]
     Active Substance: DULOXETINE
  8. DEXTROSE. [Concomitant]
     Active Substance: DEXTROSE
  9. PRILOSEC OTC [Suspect]
     Active Substance: OMEPRAZOLE MAGNESIUM
     Indication: GASTROOESOPHAGEAL REFLUX DISEASE
     Route: 048
     Dates: start: 200605, end: 200608
  10. TICAGRELOR. [Concomitant]
     Active Substance: TICAGRELOR
  11. VALSARTAN. [Concomitant]
     Active Substance: VALSARTAN
  12. METOPROLOL. [Concomitant]
     Active Substance: METOPROLOL
     Indication: HYPERTENSION
     Dates: start: 200708, end: 20190505
  13. LOSARTAN. [Concomitant]
     Active Substance: LOSARTAN
  14. METOPROLOL TARTRATE. [Concomitant]
     Active Substance: METOPROLOL TARTRATE
  15. AMLODIPINE [Concomitant]
     Active Substance: AMLODIPINE BESYLATE
  16. FUROSEMIDE. [Concomitant]
     Active Substance: FUROSEMIDE
     Indication: OEDEMA
     Dates: start: 200311, end: 20190505
  17. LORAZEPAM. [Concomitant]
     Active Substance: LORAZEPAM
  18. ISOSORBIDE DINITRATE. [Concomitant]
     Active Substance: ISOSORBIDE DINITRATE
     Indication: ANGINA PECTORIS
     Dates: start: 200401, end: 20190505
  19. ALBUTEROL. [Concomitant]
     Active Substance: ALBUTEROL
  20. HYDROMORPHONE [Concomitant]
     Active Substance: HYDROMORPHONE
  21. ATORVASTATIN [Concomitant]
     Active Substance: ATORVASTATIN
  22. ONDANSETRON [Concomitant]
     Active Substance: ONDANSETRON
  23. GLIPIZIDE. [Concomitant]
     Active Substance: GLIPIZIDE
     Indication: DIABETES MELLITUS
     Dates: start: 200502, end: 20190505
  24. PREDNISONE. [Concomitant]
     Active Substance: PREDNISONE
     Indication: INFLAMMATION
     Dates: start: 201603, end: 20190505
  25. SIMVASTATIN. [Concomitant]
     Active Substance: SIMVASTATIN
     Indication: BLOOD CHOLESTEROL ABNORMAL
     Dates: start: 200701, end: 20190505
  26. FAMOTIDINE. [Concomitant]
     Active Substance: FAMOTIDINE
     Dates: start: 201810
  27. POTASSIUM GLUCONATE [Concomitant]
     Active Substance: POTASSIUM GLUCONATE

REACTIONS (6)
  - Chronic kidney disease-mineral and bone disorder [Unknown]
  - Nephrogenic anaemia [Unknown]
  - Chronic kidney disease [Unknown]
  - Acute kidney injury [Unknown]
  - End stage renal disease [Unknown]
  - Renal failure [Unknown]

NARRATIVE: CASE EVENT DATE: 2012
